FAERS Safety Report 10345705 (Version 2)
Quarter: 2014Q3

REPORT INFORMATION
  Report Type: Spontaneous
  Country: US (occurrence: US)
  Receive Date: 20140728
  Receipt Date: 20140911
  Transmission Date: 20150326
  Serious: Yes (Hospitalization)
  Sender: FDA-Public Use
  Company Number: US-GLAXOSMITHKLINE-A1082357A

PATIENT
  Age: 72 Year
  Sex: Female

DRUGS (6)
  1. VITAMIN D [Concomitant]
     Active Substance: CHOLECALCIFEROL
  2. XANAX [Concomitant]
     Active Substance: ALPRAZOLAM
  3. METOPROLOL [Concomitant]
     Active Substance: METOPROLOL
  4. SYNTHROID [Concomitant]
     Active Substance: LEVOTHYROXINE SODIUM
  5. ONE A DAY [Concomitant]
  6. VENTOLIN [Suspect]
     Active Substance: ALBUTEROL SULFATE
     Indication: ASTHMA
     Dosage: 2PUFF FOUR TIMES PER DAY
     Route: 055
     Dates: start: 2010

REACTIONS (7)
  - Pulmonary thrombosis [Recovering/Resolving]
  - Myocardial infarction [Recovering/Resolving]
  - Dyspnoea [Not Recovered/Not Resolved]
  - Back pain [Recovering/Resolving]
  - Blood pressure increased [Recovering/Resolving]
  - Thrombosis [Recovering/Resolving]
  - Chest pain [Recovering/Resolving]

NARRATIVE: CASE EVENT DATE: 201407
